FAERS Safety Report 6670676-7 (Version None)
Quarter: 2010Q2

REPORT INFORMATION
  Report Type: 
  Country: None (occurrence: None)
  Receive Date: 20100407
  Receipt Date: 20100330
  Transmission Date: 20101027
  Serious: Yes (Hospitalization)
  Sender: FDA-Public Use
  Company Number: US-ASTRAZENECA-2010SE13899

PATIENT
  Age: 78 Year
  Sex: Male
  Weight: 64.4 kg

DRUGS (12)
  1. TENORMIN [Suspect]
     Indication: HEART RATE IRREGULAR
     Route: 048
     Dates: start: 20100101, end: 20100101
  2. TENORMIN [Suspect]
     Route: 048
     Dates: start: 20100201, end: 20100201
  3. TENORMIN [Suspect]
     Route: 048
  4. TENORMIN [Suspect]
     Route: 048
  5. TENORMIN [Suspect]
     Route: 048
     Dates: start: 20100201
  6. OMEPRAZOLE [Concomitant]
  7. WARFARIN SODIUM [Concomitant]
  8. SIMVASTATIN [Concomitant]
  9. IODIPINE [Concomitant]
  10. BICALUTAMIDE [Concomitant]
  11. LEVETIRACETAM [Concomitant]
  12. TEMAZEPAM [Concomitant]

REACTIONS (3)
  - CONVULSION [None]
  - HEART RATE DECREASED [None]
  - TACHYCARDIA [None]
